FAERS Safety Report 7962575 (Version 2)
Quarter: 2013Q4

REPORT INFORMATION
  Report Type: Spontaneous
  Country: CA (occurrence: TR)
  Receive Date: 20110526
  Receipt Date: 20131121
  Transmission Date: 20140711
  Serious: Yes (Other)
  Sender: FDA-Public Use
  Company Number: TR-PFIZER INC-2011111497

PATIENT
  Age: 37 Year
  Sex: Male

DRUGS (3)
  1. PREGABALIN [Suspect]
     Indication: ANXIETY
     Dosage: 300 MG, DAILY
  2. PREGABALIN [Suspect]
     Dosage: 20 CAPSULES (EQUIVALENT TO 3000 MG) ON 6-7 OCCASIONS
  3. VALPROATE [Concomitant]
     Indication: EPILEPSY
     Dosage: UNK

REACTIONS (3)
  - Drug abuse [Recovered/Resolved]
  - Euphoric mood [Recovered/Resolved]
  - Anxiety [Recovering/Resolving]
